FAERS Safety Report 11588944 (Version 4)
Quarter: 2018Q1

REPORT INFORMATION
  Report Type: Spontaneous
  Country: US (occurrence: US)
  Receive Date: 20151002
  Receipt Date: 20180228
  Transmission Date: 20180508
  Serious: Yes (Hospitalization, Other)
  Sender: FDA-Public Use
  Company Number: US-ELI_LILLY_AND_COMPANY-US201509007333

PATIENT
  Age: 76 Year
  Sex: Male
  Weight: 112.93 kg

DRUGS (14)
  1. POTASSIUM [Concomitant]
     Active Substance: POTASSIUM
     Indication: HYPERTENSION
     Dosage: UNK, UNKNOWN
     Route: 065
     Dates: start: 2006
  2. AMIODARONE [Concomitant]
     Active Substance: AMIODARONE
     Indication: CARDIAC DISORDER
     Dosage: UNK, UNKNOWN
     Route: 065
     Dates: start: 2006
  3. LEVOTHYROXINE. [Concomitant]
     Active Substance: LEVOTHYROXINE
     Indication: THYROID DISORDER
     Dosage: UNK, UNKNOWN
     Route: 065
     Dates: start: 2006
  4. AXIRON [Suspect]
     Active Substance: TESTOSTERONE
     Indication: BLOOD TESTOSTERONE DECREASED
     Dosage: UNK, UNKNOWN
     Route: 065
     Dates: start: 201112, end: 201205
  5. HYDROCODONE [Concomitant]
     Active Substance: HYDROCODONE
     Indication: PAIN
     Dosage: UNK, UNKNOWN
     Route: 065
     Dates: start: 201203, end: 201305
  6. LEVOFLOXACIN. [Concomitant]
     Active Substance: LEVOFLOXACIN
     Indication: INFECTION
     Dosage: UNK, UNKNOWN
     Route: 065
     Dates: start: 201203
  7. FUROSEMIDE. [Concomitant]
     Active Substance: FUROSEMIDE
     Indication: FLUID RETENTION
     Dosage: UNK, UNKNOWN
     Route: 065
     Dates: start: 2006
  8. ERGOCALCIFEROL. [Concomitant]
     Active Substance: ERGOCALCIFEROL
     Indication: VITAMIN D
     Dosage: UNK, UNKNOWN
     Route: 065
     Dates: start: 2006
  9. WARFARIN [Concomitant]
     Active Substance: WARFARIN
     Indication: ANTICOAGULANT THERAPY
     Dosage: UNK, UNKNOWN
     Route: 065
     Dates: start: 2006
  10. MUPIROCIN. [Concomitant]
     Active Substance: MUPIROCIN
     Indication: SKIN INFECTION
     Dosage: UNK, UNKNOWN
     Route: 065
     Dates: start: 201205
  11. METOPROLOL. [Concomitant]
     Active Substance: METOPROLOL
     Indication: HYPERTENSION
     Dosage: UNK, UNKNOWN
     Route: 065
     Dates: start: 201203
  12. POTASSIUM [Concomitant]
     Active Substance: POTASSIUM
     Indication: ARRHYTHMIA
  13. LISINOPRIL. [Concomitant]
     Active Substance: LISINOPRIL
     Indication: HYPERTENSION
     Dosage: UNK, UNKNOWN
     Route: 065
     Dates: start: 2006
  14. ENDOCET [Concomitant]
     Active Substance: ACETAMINOPHEN\OXYCODONE HYDROCHLORIDE
     Indication: PAIN
     Dosage: UNK, UNKNOWN
     Route: 065
     Dates: start: 201204

REACTIONS (1)
  - Deep vein thrombosis [Not Recovered/Not Resolved]

NARRATIVE: CASE EVENT DATE: 20120503
